FAERS Safety Report 18359941 (Version 1)
Quarter: 2020Q4

REPORT INFORMATION
  Report Type: Spontaneous
  Country: US (occurrence: US)
  Receive Date: 20201008
  Receipt Date: 20201008
  Transmission Date: 20210114
  Serious: Yes (Death, Hospitalization, Other)
  Sender: FDA-Public Use
  Company Number: US-SUN PHARMACEUTICAL INDUSTRIES LTD-2019R1-225274

PATIENT
  Age: 75 Year
  Sex: Male

DRUGS (4)
  1. CAPECITABINE. [Suspect]
     Active Substance: CAPECITABINE
     Indication: CHEMOTHERAPY
  2. GEMCITABINE. [Suspect]
     Active Substance: GEMCITABINE
     Indication: CHEMOTHERAPY
  3. CAPECITABINE. [Suspect]
     Active Substance: CAPECITABINE
     Indication: PANCREATIC CARCINOMA
     Dosage: (620 MG/M^2, AS 1150 MG BID ON DAYS 1-21)
     Route: 048
  4. GEMCITABINE. [Suspect]
     Active Substance: GEMCITABINE
     Indication: PANCREATIC CARCINOMA
     Dosage: (1,000 MG/M^2, AS 1862 MG ON DAY 1, 8, AND 15 ON A 28 DAY CYCLE FOR 6 CYCLES)
     Route: 065

REACTIONS (11)
  - Pulmonary toxicity [Fatal]
  - Pneumonia [Fatal]
  - Pulmonary embolism [Unknown]
  - Acute respiratory distress syndrome [Unknown]
  - Hypotension [Unknown]
  - Hypoxia [Unknown]
  - Respiratory failure [Unknown]
  - Diffuse alveolar damage [Fatal]
  - Syncope [Unknown]
  - Pulmonary oedema [Unknown]
  - Tachycardia [Unknown]
